FAERS Safety Report 16568674 (Version 2)
Quarter: 2020Q4

REPORT INFORMATION
  Report Type: Other
  Country: US (occurrence: US)
  Receive Date: 20190713
  Receipt Date: 20201017
  Transmission Date: 20210113
  Serious: Yes (Hospitalization)
  Sender: FDA-Public Use
  Company Number: US-ROCHE-2347761

PATIENT
  Age: 82 Year
  Sex: Male

DRUGS (3)
  1. ZELBORAF [Suspect]
     Active Substance: VEMURAFENIB
     Indication: REMISSION NOT ACHIEVED
     Dosage: 8 PILLS A DAY
     Route: 065
     Dates: start: 20190408
  2. ZELBORAF [Suspect]
     Active Substance: VEMURAFENIB
     Route: 048
  3. ZELBORAF [Suspect]
     Active Substance: VEMURAFENIB
     Indication: PROSTATE CANCER
     Dosage: 1 PILL EVERY OTHER DAY
     Route: 065
     Dates: start: 20190418

REACTIONS (4)
  - Off label use [Unknown]
  - Lethargy [Recovered/Resolved]
  - Intentional product use issue [Unknown]
  - Asthenia [Recovered/Resolved]

NARRATIVE: CASE EVENT DATE: 20190418
